FAERS Safety Report 14441958 (Version 1)
Quarter: 2018Q1

REPORT INFORMATION
  Report Type: Spontaneous
  Country: US (occurrence: US)
  Receive Date: 20180125
  Receipt Date: 20180125
  Transmission Date: 20180509
  Serious: Yes (Other)
  Sender: FDA-Public Use
  Company Number: US-PFIZER INC-2017312667

PATIENT
  Age: 59 Year
  Sex: Female
  Weight: 81.65 kg

DRUGS (14)
  1. RINGER-LACTATE SOLUTION [Concomitant]
     Indication: HYPOTENSION
     Dosage: 1 L, UNK
  2. INSULIN HUMAN [Concomitant]
     Active Substance: INSULIN HUMAN
     Dosage: UNK (INITIATED AT A LOW RATE OF 0.1 UNITS/KG/HR)
  3. NOREPINEPHRINE. [Concomitant]
     Active Substance: NOREPINEPHRINE
     Dosage: 40 UG/MIN
  4. GLUCOSE [Suspect]
     Active Substance: DEXTROSE
     Dosage: UNK (0.08 G/KG/HR)
  5. NOREPINEPHRINE. [Concomitant]
     Active Substance: NOREPINEPHRINE
     Dosage: 4 UG/MIN
  6. INSULIN HUMAN [Concomitant]
     Active Substance: INSULIN HUMAN
     Dosage: UNK (INCREASED TO 1.1 UNITS/KG/HR)
  7. GLUCOSE [Suspect]
     Active Substance: DEXTROSE
     Dosage: UNK (0.6 G/KG/HR)
  8. CALCIUM GLUCONATE. [Concomitant]
     Active Substance: CALCIUM GLUCONATE
     Indication: HYPOTENSION
     Dosage: UNK
     Route: 042
  9. CALCIUM CHLORIDE. [Concomitant]
     Active Substance: CALCIUM CHLORIDE
     Dosage: 2000 MG, UNK
     Route: 040
  10. SODIUM CHLORIDE. [Concomitant]
     Active Substance: SODIUM CHLORIDE
     Indication: HYPOTENSION
     Dosage: 1 L, UNK
  11. GLUCAGON. [Concomitant]
     Active Substance: GLUCAGON
     Dosage: 10 MG, UNK
     Route: 040
  12. GLUCOSE [Suspect]
     Active Substance: DEXTROSE
     Dosage: UNK(0.7 G/KG/HR)
  13. NOREPINEPHRINE. [Concomitant]
     Active Substance: NOREPINEPHRINE
     Dosage: UNK (DECREASE IN THE RATE OF INFUSION)
  14. GLUCAGON. [Concomitant]
     Active Substance: GLUCAGON
     Dosage: UNK (3 MG/HR)

REACTIONS (1)
  - Hyponatraemia [Recovered/Resolved]
